FAERS Safety Report 7620207-X (Version None)
Quarter: 2011Q3

REPORT INFORMATION
  Report Type: 
  Country: None (occurrence: None)
  Receive Date: 20110719
  Receipt Date: 20110706
  Transmission Date: 20111222
  Serious: Yes (Other)
  Sender: FDA-Public Use
  Company Number: PHHY2011US61632

PATIENT
  Sex: Female

DRUGS (8)
  1. TEKTURNA HCT [Suspect]
     Dosage: 1 DF, QD
     Dates: start: 20070101
  2. NORVASC [Concomitant]
     Dosage: UNK UKN, UNK
  3. NIASPAN [Concomitant]
     Indication: BLOOD CHOLESTEROL ABNORMAL
     Dosage: UNK UKN, UNK
  4. TEKTURNA [Suspect]
     Dosage: 300 MG, UNK
  5. HYDROCHLOROTHIAZIDE [Concomitant]
     Dosage: 25 MG, HALF A TABLET
  6. COREG [Concomitant]
     Dosage: 10 MG, UNK
  7. ENALAPRIL MALEATE [Concomitant]
     Dosage: UNK UKN, UNK
  8. ZOCOR [Concomitant]
     Indication: BLOOD CHOLESTEROL ABNORMAL
     Dosage: UNK UKN, UNK

REACTIONS (7)
  - HYPOTENSION [None]
  - FEELING ABNORMAL [None]
  - HEART RATE DECREASED [None]
  - BLOOD CHOLESTEROL INCREASED [None]
  - HYPERTENSION [None]
  - RASH [None]
  - WRONG TECHNIQUE IN DRUG USAGE PROCESS [None]
